FAERS Safety Report 6333509-4 (Version None)
Quarter: 2009Q3

REPORT INFORMATION
  Report Type: 
  Country: None (occurrence: None)
  Receive Date: 20090828
  Receipt Date: 20090826
  Transmission Date: 20100115
  Serious: Yes (Other)
  Sender: FDA-Public Use
  Company Number: US-GENENTECH-289278

PATIENT
  Sex: Female
  Weight: 82.086 kg

DRUGS (1)
  1. AVASTIN [Suspect]
     Indication: OVARIAN CANCER
     Dosage: 15 MG/KG, Q21D
     Route: 042
     Dates: start: 20090715

REACTIONS (1)
  - BLOOD POTASSIUM INCREASED [None]
